FAERS Safety Report 9253088 (Version 3)
Quarter: 2013Q3

REPORT INFORMATION
  Report Type: Spontaneous
  Country: US (occurrence: US)
  Receive Date: 20130424
  Receipt Date: 20130927
  Transmission Date: 20140515
  Serious: Yes (Other)
  Sender: FDA-Public Use
  Company Number: US-PFIZER INC-2013123720

PATIENT
  Age: 74 Year
  Sex: Female
  Weight: 68.03 kg

DRUGS (18)
  1. LIPITOR [Suspect]
     Indication: BLOOD CHOLESTEROL INCREASED
     Dosage: 20 MG, 1X/DAY
  2. LIPITOR [Suspect]
     Indication: CARDIAC DISORDER
     Dosage: 20 MG 5X/DAY
  3. LIPITOR [Suspect]
     Dosage: 20 MG, UNK
  4. NORVASC [Suspect]
     Indication: HYPERTENSION
     Dosage: 5 MG, DAILY
  5. NORVASC [Suspect]
     Indication: BLOOD PRESSURE ABNORMAL
     Dosage: 20 MG, UNK
  6. NORVASC [Suspect]
     Dosage: 40 MG, UNK
  7. PROTONIX [Suspect]
     Indication: GASTRIC DISORDER
     Dosage: 40 MG, DAILY
  8. ZOLOFT [Suspect]
     Indication: DEPRESSION
     Dosage: 100 MG, DAILY
  9. ZOLOFT [Suspect]
     Dosage: 150 MG, DAILY
  10. PHENYTAL [Suspect]
     Dosage: UNK
     Dates: end: 201302
  11. VERSED [Suspect]
     Dosage: UNK
     Dates: end: 201302
  12. POTASSIUM [Concomitant]
     Indication: BLOOD POTASSIUM DECREASED
     Dosage: 10 MEQ, 3X/DAY
  13. AMBIEN [Concomitant]
     Indication: SLEEP DISORDER
     Dosage: 10 MG, UNK
  14. LEVOTHYROXINE [Concomitant]
     Indication: HYPOTHYROIDISM
     Dosage: 100 UG, UNK
  15. TRAZODONE [Concomitant]
     Indication: DEPRESSION
     Dosage: 100 MG, DAILY, AT BED TIME
  16. TRAZODONE [Concomitant]
     Indication: SLEEP DISORDER
  17. ZETIA [Concomitant]
     Indication: BLOOD CHOLESTEROL ABNORMAL
     Dosage: 10 MG, UNK
  18. POTASSIUM CHLORIDE [Concomitant]
     Indication: BLOOD POTASSIUM DECREASED
     Dosage: 10 MEQ, 3X/DAY

REACTIONS (3)
  - Brain injury [Unknown]
  - Arthropathy [Unknown]
  - Trigeminal neuralgia [Unknown]
